FAERS Safety Report 9537721 (Version 3)
Quarter: 2013Q4

REPORT INFORMATION
  Report Type: Report from Study
  Country: US (occurrence: US)
  Receive Date: 20130919
  Receipt Date: 20131122
  Transmission Date: 20140711
  Serious: Yes (Hospitalization, Other)
  Sender: FDA-Public Use
  Company Number: US-ABBVIE-13P-163-1147536-00

PATIENT
  Age: 44 Year
  Sex: Female
  Weight: 69.01 kg

DRUGS (9)
  1. HUMIRA [Suspect]
     Indication: CROHN^S DISEASE
     Route: 058
     Dates: start: 20110526
  2. DURAGESIC [Concomitant]
     Indication: RHEUMATOID ARTHRITIS
  3. ABILIFY [Concomitant]
     Indication: INSOMNIA
     Dosage: AT BEDTIME
  4. ABILIFY [Concomitant]
     Indication: PRODUCT USED FOR UNKNOWN INDICATION
     Dosage: AT BEDTIME
  5. XANAX [Concomitant]
     Indication: ANXIETY
  6. ADDERALL [Concomitant]
     Indication: ATTENTION DEFICIT/HYPERACTIVITY DISORDER
  7. ALEVE [Concomitant]
     Indication: PAIN
  8. PREDNISONE [Concomitant]
     Indication: PRODUCT USED FOR UNKNOWN INDICATION
  9. ENTOCORT [Concomitant]
     Indication: PRODUCT USED FOR UNKNOWN INDICATION

REACTIONS (4)
  - Trigger finger [Recovered/Resolved]
  - Carpal tunnel syndrome [Recovered/Resolved]
  - Staphylococcal infection [Recovered/Resolved]
  - Tuberculin test positive [Unknown]
